FAERS Safety Report 9030609 (Version 1)
Quarter: 2013Q1

REPORT INFORMATION
  Report Type: Report from Study
  Country: US (occurrence: US)
  Receive Date: 20130123
  Receipt Date: 20130123
  Transmission Date: 20140127
  Serious: No
  Sender: FDA-Public Use
  Company Number: US-VERTEX PHARMACEUTICALS INC.-2013-001000

PATIENT
  Sex: Male
  Weight: 92 kg

DRUGS (15)
  1. VX-950 (TELAPREVIR) [Suspect]
     Indication: HEPATITIS C
     Dosage: 750 MG, TID
     Route: 048
     Dates: start: 2012
  2. PEGASYS [Suspect]
     Indication: HEPATITIS C
     Dosage: 180 ?G, QW
     Route: 058
     Dates: start: 2012
  3. RIBAVIRIN [Suspect]
     Indication: HEPATITIS C
     Dosage: 600 MG, BID
     Dates: start: 2012
  4. PROCRIT                            /00928302/ [Concomitant]
     Dosage: 40000 UT, UNK
     Route: 058
     Dates: start: 2013
  5. CELLCEPT                           /01275102/ [Concomitant]
     Dosage: 500 MG, UNK
  6. LOTREL [Concomitant]
     Dosage: 5-20 MG
  7. LANTUS [Concomitant]
     Dosage: 15 UT, QD
  8. NEXIUM                             /01479302/ [Concomitant]
     Dosage: 40 MG, QD
  9. GLIPIZIDE ER [Concomitant]
     Dosage: 2.5 MG, QD
  10. PROGRAF [Concomitant]
     Dosage: 0.5 MG, QD
  11. CALCIUM+VITAMIN D3 [Concomitant]
     Dosage: UNK, QD
  12. OXYCONTIN [Concomitant]
     Dosage: 20 MG, PRN
  13. CVS MAGNESIUM [Concomitant]
     Dosage: 250 MG, QD
  14. MULTIPLE VITAMINS [Concomitant]
     Dosage: UNK, QD
  15. OXYCODONE HCL [Concomitant]
     Dosage: 5 MG, UNK

REACTIONS (2)
  - Fatigue [Unknown]
  - Pruritus [Unknown]
